FAERS Safety Report 18621055 (Version 1)
Quarter: 2020Q4

REPORT INFORMATION
  Report Type: Spontaneous
  Country: FR (occurrence: FR)
  Receive Date: 20201215
  Receipt Date: 20201215
  Transmission Date: 20210114
  Serious: Yes (Death, Hospitalization)
  Sender: FDA-Public Use
  Company Number: FR-BAYER-2020-271089

PATIENT
  Age: 83 Year
  Sex: Female

DRUGS (1)
  1. VITRAKVI [Suspect]
     Active Substance: LAROTRECTINIB
     Indication: THYROID CANCER
     Route: 050
     Dates: start: 20200701, end: 20200701

REACTIONS (4)
  - Incorrect dosage administered [Recovered/Resolved]
  - Accidental overdose [Recovered/Resolved]
  - Tracheal haemorrhage [Recovered/Resolved]
  - Dose calculation error [Recovered/Resolved]

NARRATIVE: CASE EVENT DATE: 20200701
